FAERS Safety Report 5977321-4 (Version None)
Quarter: 2008Q4

REPORT INFORMATION
  Report Type: 
  Country: None (occurrence: None)
  Receive Date: 20081203
  Receipt Date: 20081124
  Transmission Date: 20090506
  Serious: Yes (Hospitalization)
  Sender: FDA-Public Use
  Company Number: PHBS2008ES06455

PATIENT
  Age: 27 Year
  Sex: Female

DRUGS (4)
  1. MYCOPHENOLATE MOFETIL [Suspect]
     Indication: SYSTEMIC LUPUS ERYTHEMATOSUS
     Dosage: 360 MG, BID
  2. PREDNISONE TAB [Concomitant]
     Indication: SYSTEMIC LUPUS ERYTHEMATOSUS
     Dosage: 10 MG/D
  3. PREDNISONE TAB [Concomitant]
     Dosage: 60 MG/D
  4. HYDROXYCHLOROQUINE SULFATE [Concomitant]
     Dosage: 200 MG/D

REACTIONS (17)
  - ANAEMIA [None]
  - AREFLEXIA [None]
  - BLADDER SPHINCTER ATONY [None]
  - CONVULSION [None]
  - DIARRHOEA [None]
  - DYSARTHRIA [None]
  - DYSPHAGIA [None]
  - MENINGITIS BACTERIAL [None]
  - NYSTAGMUS [None]
  - PARAPLEGIA [None]
  - PLEOCYTOSIS [None]
  - PROTEIN TOTAL INCREASED [None]
  - PYREXIA [None]
  - RED BLOOD CELL SEDIMENTATION RATE INCREASED [None]
  - SPINAL CORD OEDEMA [None]
  - URETERAL CATHETERISATION [None]
  - URINARY INCONTINENCE [None]
